FAERS Safety Report 7180223-1 (Version None)
Quarter: 2010Q4

REPORT INFORMATION
  Report Type: 
  Country: None (occurrence: None)
  Receive Date: 20101221
  Receipt Date: 20101206
  Transmission Date: 20110411
  Serious: Yes (Death, Other)
  Sender: FDA-Public Use
  Company Number: IT-PURDUE-GBR-2010-0007470

PATIENT

DRUGS (6)
  1. MORPHINE SULFATE [Suspect]
     Indication: PAIN MANAGEMENT
     Dosage: 10 MG, UNK
     Route: 042
  2. MORPHINE SULFATE [Suspect]
     Indication: ABDOMINAL PAIN
     Dosage: 10 MG, UNK
     Route: 058
  3. MORPHINE SULFATE [Suspect]
     Dosage: 8 MG, UNK
     Route: 042
  4. TRAMADOL [Suspect]
     Indication: ABDOMINAL PAIN
     Dosage: 50 MG, BID
     Route: 042
  5. TRAMADOL [Suspect]
     Dosage: 50 MG, UNK
     Route: 042
  6. NAROPIN [Concomitant]
     Indication: PAIN MANAGEMENT
     Dosage: 60 MG, (TOTAL DOSE)

REACTIONS (6)
  - COMA HEPATIC [None]
  - HEPATIC FAILURE [None]
  - ILEUS PARALYTIC [None]
  - MULTI-ORGAN FAILURE [None]
  - PANCREATIC NECROSIS [None]
  - PANCREATITIS ACUTE [None]
